FAERS Safety Report 14979438 (Version 1)
Quarter: 2018Q2

REPORT INFORMATION
  Report Type: Spontaneous
  Country: FR (occurrence: FR)
  Receive Date: 20180606
  Receipt Date: 20180606
  Transmission Date: 20180711
  Serious: Yes (Death, Other)
  Sender: FDA-Public Use
  Company Number: FR-PFIZER INC-2018224095

PATIENT
  Age: 82 Year
  Sex: Female
  Weight: 47 kg

DRUGS (1)
  1. FRAGMINE [Suspect]
     Active Substance: DALTEPARIN SODIUM
     Indication: TUMOUR THROMBOSIS
     Dosage: 0.4 ML/10000 IU

REACTIONS (3)
  - Phlebitis [Unknown]
  - Death [Fatal]
  - Pulmonary embolism [Unknown]
